FAERS Safety Report 5996643-4 (Version None)
Quarter: 2008Q4

REPORT INFORMATION
  Report Type: 
  Country: None (occurrence: None)
  Receive Date: 20081212
  Receipt Date: 20081110
  Transmission Date: 20090506
  Serious: No
  Sender: FDA-Public Use
  Company Number: US-ABBOTT-08P-163-0483141-00

PATIENT
  Sex: Female
  Weight: 90.8 kg

DRUGS (18)
  1. HUMIRA [Suspect]
     Indication: PSORIATIC ARTHROPATHY
     Route: 058
     Dates: start: 20080816, end: 20081004
  2. METOPROLOL [Concomitant]
     Indication: HYPERTENSION
  3. SIMVASTATIN [Concomitant]
     Indication: BLOOD CHOLESTEROL INCREASED
  4. UBIDECARENONE [Concomitant]
     Indication: VITAMIN SUPPLEMENTATION
  5. UBIDECARENONE [Concomitant]
     Indication: MUSCLE SPASMS
  6. FOLIC ACID [Concomitant]
     Indication: VITAMIN SUPPLEMENTATION
  7. METHOTREXATE [Concomitant]
     Indication: RHEUMATOID ARTHRITIS
  8. ROPINIROLE HYDROCHLORIDE [Concomitant]
     Indication: RESTLESS LEGS SYNDROME
  9. PREGABALIN [Concomitant]
     Indication: RESTLESS LEGS SYNDROME
  10. ACETYLSALICYLIC ACID SRT [Concomitant]
     Indication: CARDIOVASCULAR EVENT PROPHYLAXIS
  11. FISH OIL [Concomitant]
     Indication: ARTHROPATHY
  12. HYDROCHLOROTHIAZIDE [Concomitant]
     Indication: HYPERTENSION
  13. HYDROCHLOROTHIAZIDE [Concomitant]
     Indication: SWELLING
  14. ALBUTEROL SULFATE [Concomitant]
     Indication: WHEEZING
  15. ALBUTEROL SULFATE [Concomitant]
     Indication: BRONCHITIS
  16. SERETIDE [Concomitant]
     Indication: WHEEZING
  17. SERETIDE [Concomitant]
     Indication: BRONCHITIS
  18. PREDNISONE TAB [Concomitant]
     Indication: JOINT SWELLING

REACTIONS (3)
  - INFECTION [None]
  - ROTATOR CUFF SYNDROME [None]
  - WOUND [None]
